FAERS Safety Report 20663365 (Version 2)
Quarter: 2022Q3

REPORT INFORMATION
  Report Type: Spontaneous
  Country: CA (occurrence: CA)
  Receive Date: 20220401
  Receipt Date: 20220713
  Transmission Date: 20221027
  Serious: Yes (Death, Other)
  Sender: FDA-Public Use
  Company Number: CA-GLAXOSMITHKLINE-CA2022GSK058362

PATIENT

DRUGS (2)
  1. ZANTAC [Suspect]
     Active Substance: RANITIDINE HYDROCHLORIDE
     Indication: Dyspepsia
     Dosage: UNK, QD
     Route: 065
  2. ZANTAC [Suspect]
     Active Substance: RANITIDINE HYDROCHLORIDE
     Indication: Gastrooesophageal reflux disease

REACTIONS (22)
  - Death [Fatal]
  - Breast cancer [Unknown]
  - Carcinoid tumour [Unknown]
  - Invasive ductal breast carcinoma [Unknown]
  - Metastatic neoplasm [Unknown]
  - Breast cancer stage III [Unknown]
  - Breast cancer metastatic [Unknown]
  - Metastases to liver [Unknown]
  - Metastases to lung [Unknown]
  - Metastases to central nervous system [Unknown]
  - Breast cancer stage IV [Unknown]
  - Lung neoplasm malignant [Unknown]
  - Breast cancer female [Unknown]
  - Metastases to lymph nodes [Unknown]
  - Carcinoid tumour pulmonary [Unknown]
  - Respiratory distress [Unknown]
  - Metastases to bone [Unknown]
  - Pulmonary calcification [Unknown]
  - Breast mass [Unknown]
  - Retracted nipple [Unknown]
  - Dyspnoea [Unknown]
  - Breast disorder [Unknown]
